FAERS Safety Report 13448422 (Version 3)
Quarter: 2017Q2

REPORT INFORMATION
  Report Type: Spontaneous
  Country: US (occurrence: US)
  Receive Date: 20170417
  Receipt Date: 20170504
  Transmission Date: 20170830
  Serious: No
  Sender: FDA-Public Use
  Company Number: US-ACTELION-A-NJ2017-152573

PATIENT
  Age: 63 Year
  Sex: Female
  Weight: 61.68 kg

DRUGS (2)
  1. UPTRAVI [Suspect]
     Active Substance: SELEXIPAG
     Indication: PULMONARY ARTERIAL HYPERTENSION
     Dosage: 200 MCG, BID
     Route: 048
  2. UPTRAVI [Suspect]
     Active Substance: SELEXIPAG
     Dosage: 400 MCG, BID
     Route: 048

REACTIONS (4)
  - Incontinence [Unknown]
  - Weight decreased [Unknown]
  - Pollakiuria [Unknown]
  - Disorientation [Unknown]

NARRATIVE: CASE EVENT DATE: 201703
